FAERS Safety Report 9344088 (Version 2)
Quarter: 2013Q2

REPORT INFORMATION
  Report Type: Spontaneous
  Country: BR (occurrence: BR)
  Receive Date: 20130612
  Receipt Date: 20130613
  Transmission Date: 20140414
  Serious: Yes (Other)
  Sender: FDA-Public Use
  Company Number: BR-SANOFI-AVENTIS-2012SA056387

PATIENT
  Age: 33 Year
  Sex: Female
  Weight: 60 kg

DRUGS (3)
  1. CLEXANE [Suspect]
     Indication: ANTICOAGULANT THERAPY
     Route: 058
     Dates: start: 20120805
  2. ENDOFOLIN [Concomitant]
     Indication: NUTRITIONAL SUPPLEMENTATION
     Dosage: FREQUENCE: AT NIGHT
     Route: 048
     Dates: start: 2011
  3. UTROGESTAN [Concomitant]
     Indication: HORMONE THERAPY
     Dosage: FREQUENCE: IN THE MORNING
     Route: 067
     Dates: start: 2012

REACTIONS (3)
  - Foetal death [Unknown]
  - Exposure during pregnancy [Unknown]
  - Abortion [Unknown]
